FAERS Safety Report 24402804 (Version 1)
Quarter: 2024Q4

REPORT INFORMATION
  Report Type: Spontaneous
  Country: FR (occurrence: FR)
  Receive Date: 20241007
  Receipt Date: 20241007
  Transmission Date: 20250114
  Serious: Yes (Hospitalization, Other)
  Sender: CELLTRION
  Company Number: None

PATIENT

DRUGS (2)
  1. BEVACIZUMAB [Suspect]
     Active Substance: BEVACIZUMAB
     Indication: Bronchial carcinoma
     Dosage: 825 MG, EVERY 3 WEEKS (DOSAGE TEXT: 825 MG)
     Route: 042
     Dates: start: 20230220, end: 20231206
  2. RETEVMO [Suspect]
     Active Substance: SELPERCATINIB
     Indication: Bronchial carcinoma
     Dosage: 160 MG, EVERY 12 HOURS
     Route: 048
     Dates: start: 20240124, end: 20240221

REACTIONS (2)
  - Thrombotic microangiopathy [Recovering/Resolving]
  - Overdose [Unknown]

NARRATIVE: CASE EVENT DATE: 20240209
